FAERS Safety Report 9045949 (Version 1)
Quarter: 2013Q1

REPORT INFORMATION
  Report Type: Report from Study
  Country: US (occurrence: US)
  Receive Date: 20130201
  Receipt Date: 20130201
  Transmission Date: 20140127
  Serious: Yes (Hospitalization, Other)
  Sender: FDA-Public Use
  Company Number: US-ABBOTT-12P-163-1019430-00

PATIENT
  Age: 78 Year
  Sex: Female

DRUGS (7)
  1. HUMIRA [Suspect]
     Indication: RHEUMATOID ARTHRITIS
  2. METHOTREXATE [Suspect]
     Indication: PRODUCT USED FOR UNKNOWN INDICATION
     Dosage: 7,8 OR 9 TABS-UNSURE OF DOSE
  3. METHOTREXATE [Suspect]
     Dosage: 1-2 TABS
  4. PLAQUENIL [Concomitant]
     Indication: RHEUMATOID ARTHRITIS
     Dosage: 200 MG X 1 TAB IN A.M. AND 1 TAB IN P.M.
  5. VITAMIN C [Concomitant]
     Indication: PRODUCT USED FOR UNKNOWN INDICATION
  6. CALCIUM [Concomitant]
     Indication: PRODUCT USED FOR UNKNOWN INDICATION
  7. BLUE EMU CREAM [Concomitant]
     Indication: PRODUCT USED FOR UNKNOWN INDICATION

REACTIONS (15)
  - Onychomycosis [Recovered/Resolved]
  - Anaemia [Recovered/Resolved]
  - Bunion [Recovered/Resolved]
  - Upper limb fracture [Recovered/Resolved]
  - Platelet count decreased [Recovered/Resolved]
  - Rheumatoid arthritis [Not Recovered/Not Resolved]
  - Musculoskeletal stiffness [Not Recovered/Not Resolved]
  - Mobility decreased [Not Recovered/Not Resolved]
  - Injection site pain [Recovered/Resolved]
  - Needle issue [Recovered/Resolved]
  - Arthralgia [Not Recovered/Not Resolved]
  - Hyperkeratosis [Unknown]
  - Bone disorder [Unknown]
  - Toe operation [Unknown]
  - Fall [Recovered/Resolved]
